FAERS Safety Report 5171214-0 (Version None)
Quarter: 2006Q4

REPORT INFORMATION
  Report Type: 
  Country: None (occurrence: None)
  Receive Date: 20061213
  Receipt Date: 20060103
  Transmission Date: 20070319
  Serious: Yes (Other)
  Sender: FDA-Public Use
  Company Number: US-AMGEN-STX163374

PATIENT
  Sex: Female

DRUGS (12)
  1. ENBREL [Suspect]
     Indication: RHEUMATOID ARTHRITIS
     Route: 058
     Dates: start: 20000120, end: 20051205
  2. METHOTREXATE [Suspect]
     Dates: end: 20051205
  3. PREDNISONE TAB [Concomitant]
  4. LEVOXYL [Concomitant]
  5. CELEBREX [Concomitant]
  6. ZOLOFT [Concomitant]
  7. PRILOSEC [Concomitant]
  8. PLAQUENIL [Concomitant]
  9. VITAMIN CAP [Concomitant]
  10. ARAVA [Concomitant]
     Route: 048
     Dates: start: 20051229
  11. LEUCOVORIN CALCIUM [Concomitant]
  12. FOLIC ACID [Concomitant]

REACTIONS (6)
  - BREAST CANCER [None]
  - CELLULITIS [None]
  - CHEILITIS [None]
  - LIP SWELLING [None]
  - LOCALISED INFECTION [None]
  - LYMPHADENITIS [None]
